FAERS Safety Report 21474745 (Version 1)
Quarter: 2022Q4

REPORT INFORMATION
  Report Type: Report from Study
  Country: US (occurrence: US)
  Receive Date: 20221018
  Receipt Date: 20221018
  Transmission Date: 20230113
  Serious: No
  Sender: FDA-Public Use
  Company Number: US-ABBVIE-4155760

PATIENT
  Sex: Female

DRUGS (4)
  1. SKYRIZI [Suspect]
     Active Substance: RISANKIZUMAB-RZAA
     Indication: Product used for unknown indication
     Route: 058
  2. Moderna [Concomitant]
     Indication: COVID-19 immunisation
     Route: 030
     Dates: start: 20210104, end: 20210104
  3. Moderna [Concomitant]
     Indication: COVID-19 immunisation
     Route: 030
     Dates: start: 20210128, end: 20210128
  4. Moderna [Concomitant]
     Indication: COVID-19 immunisation
     Route: 030
     Dates: start: 20220411, end: 20220411

REACTIONS (2)
  - Therapeutic response shortened [Recovered/Resolved]
  - Pruritus [Recovered/Resolved]
